FAERS Safety Report 9421032 (Version 1)
Quarter: 2013Q3

REPORT INFORMATION
  Report Type: Spontaneous
  Country: US (occurrence: US)
  Receive Date: 20130725
  Receipt Date: 20130725
  Transmission Date: 20140515
  Serious: Yes (Other)
  Sender: FDA-Public Use
  Company Number: US-UCBSA-074326

PATIENT
  Age: 40 Year
  Sex: Female
  Weight: 65.9 kg

DRUGS (4)
  1. CIMZIA [Suspect]
     Indication: CROHN^S DISEASE
     Dosage: MAINTENANCE DOSES 400 MG
     Dates: start: 20080830, end: 20130214
  2. AMBIEN [Concomitant]
     Indication: SLEEP DISORDER
     Dosage: DOSE: 12.5 FREQUENCY 1/2-1
  3. CYMBALTA [Concomitant]
     Indication: FIBROMYALGIA
  4. VENLAFAXINE [Concomitant]
     Indication: FIBROMYALGIA

REACTIONS (1)
  - Colon cancer [Recovered/Resolved with Sequelae]
